FAERS Safety Report 5726228-6 (Version None)
Quarter: 2008Q2

REPORT INFORMATION
  Report Type: 
  Country: None (occurrence: None)
  Receive Date: 20080502
  Receipt Date: 20080428
  Transmission Date: 20081010
  Serious: Yes (Hospitalization)
  Sender: FDA-Public Use
  Company Number: FR-BRISTOL-MYERS SQUIBB COMPANY-14166623

PATIENT
  Age: 15 Year
  Sex: Female

DRUGS (3)
  1. ABILIFY [Suspect]
     Indication: HALLUCINATION, AUDITORY
     Dosage: DAILY DOSE WAS DECREASED AT 10 MG/DAY.
     Dates: start: 20070110
  2. TERCIAN [Suspect]
  3. COGNITO [Suspect]

REACTIONS (2)
  - AGITATION [None]
  - HYPERHIDROSIS [None]
